FAERS Safety Report 9162279 (Version 1)
Quarter: 2013Q1

REPORT INFORMATION
  Report Type: Spontaneous
  Country: US (occurrence: US)
  Receive Date: 20130314
  Receipt Date: 20130314
  Transmission Date: 20140127
  Serious: No
  Sender: FDA-Public Use
  Company Number: PHEH2013US004376

PATIENT
  Age: 55 Year
  Sex: Female

DRUGS (9)
  1. TASIGNA [Suspect]
     Indication: CHRONIC MYELOID LEUKAEMIA
     Dosage: 300 MG, BID
     Route: 048
     Dates: start: 20130112
  2. TASIGNA [Suspect]
     Dosage: 150 MG, BID
     Route: 048
     Dates: start: 20130114
  3. TASIGNA [Suspect]
     Dosage: 150 UNK, UNK
     Dates: start: 20130219
  4. IRON [Concomitant]
     Dosage: 1 DF, BID
     Route: 048
  5. AMLODIPINE BESYLATE [Concomitant]
     Dosage: 2.5 MG, QD
     Route: 048
  6. HYDROCHLORTHIAZID [Concomitant]
     Dosage: 25 MG, QD
     Route: 048
  7. LISINOPRIL [Concomitant]
     Dosage: 40 MG, QD
     Route: 048
  8. VITAMIN D3 [Concomitant]
     Dosage: 5000 U, UNK
  9. LEVOTHROID [Concomitant]
     Dosage: 137 UG, QD
     Route: 048

REACTIONS (4)
  - Rash [Recovering/Resolving]
  - Urticaria [Recovering/Resolving]
  - Feeling hot [Unknown]
  - Pruritus [Unknown]
